FAERS Safety Report 20515900 (Version 5)
Quarter: 2022Q1

REPORT INFORMATION
  Report Type: Spontaneous
  Country: KR (occurrence: KR)
  Receive Date: 20220225
  Receipt Date: 20220325
  Transmission Date: 20220424
  Serious: Yes (Death, Hospitalization, Other)
  Sender: FDA-Public Use
  Company Number: KR-ALXN-A202202531

PATIENT
  Age: 38 Year
  Sex: Female

DRUGS (2)
  1. ULTOMIRIS [Suspect]
     Active Substance: RAVULIZUMAB-CWVZ
     Indication: Paroxysmal nocturnal haemoglobinuria
     Dosage: 3300 MG, UNK
     Route: 065
     Dates: start: 20211228
  2. ULTOMIRIS [Suspect]
     Active Substance: RAVULIZUMAB-CWVZ
     Dosage: 3300 MG, UNK
     Route: 065
     Dates: start: 20220111

REACTIONS (6)
  - Aplastic anaemia [Fatal]
  - General physical health deterioration [Not Recovered/Not Resolved]
  - Pancytopenia [Not Recovered/Not Resolved]
  - Subdural haematoma [Unknown]
  - Epistaxis [Recovered/Resolved]
  - Heavy menstrual bleeding [Not Recovered/Not Resolved]

NARRATIVE: CASE EVENT DATE: 20220201
